FAERS Safety Report 25904121 (Version 1)
Quarter: 2025Q4

REPORT INFORMATION
  Report Type: Spontaneous
  Country: EU (occurrence: EU)
  Receive Date: 20251010
  Receipt Date: 20251010
  Transmission Date: 20260118
  Serious: Yes (Hospitalization, Other)
  Sender: AUROBINDO
  Company Number: EU-AFSSAPS-MP2025001293

PATIENT
  Age: 54 Year
  Sex: Female
  Weight: 83.5 kg

DRUGS (1)
  1. TAMOXIFEN [Suspect]
     Active Substance: TAMOXIFEN
     Indication: Breast cancer
     Dosage: 10 MILLIGRAM, UNK
     Route: 048
     Dates: start: 202204, end: 20250409

REACTIONS (1)
  - Steatohepatitis [Not Recovered/Not Resolved]

NARRATIVE: CASE EVENT DATE: 20241119
